FAERS Safety Report 24127180 (Version 1)
Quarter: 2024Q3

REPORT INFORMATION
  Report Type: Report from Study
  Country: US (occurrence: US)
  Receive Date: 20240723
  Receipt Date: 20240723
  Transmission Date: 20241017
  Serious: No
  Sender: VANDA PHARMACEUTICALS
  Company Number: US-VANDA PHARMACEUTICALS, INC-2024TASUS007201

PATIENT
  Sex: Male
  Weight: 78.912 kg

DRUGS (4)
  1. HETLIOZ [Suspect]
     Active Substance: TASIMELTEON
     Indication: Circadian rhythm sleep disorder
     Dosage: 20 MILLIGRAM, QD, BY MOUTH ONCE DAILY
     Route: 048
     Dates: start: 201406, end: 2022
  2. HYDROCORTISONE [Concomitant]
     Active Substance: HYDROCORTISONE\HYDROCORTISONE ACETATE
     Indication: Product used for unknown indication
     Dosage: APPLY TO FOREHEAD QHS
     Route: 061
  3. BACTROBAN [Concomitant]
     Active Substance: MUPIROCIN CALCIUM
     Indication: Product used for unknown indication
     Route: 061
  4. PRILOSEC [Concomitant]
     Active Substance: OMEPRAZOLE MAGNESIUM
     Indication: Product used for unknown indication
     Dosage: 20 MILLIGRAM AS DIRECTED
     Route: 048

REACTIONS (6)
  - Asthenia [Unknown]
  - Dysarthria [Unknown]
  - Decreased activity [Unknown]
  - Somnolence [Unknown]
  - Memory impairment [Unknown]
  - Fatigue [Unknown]
